FAERS Safety Report 11695729 (Version 1)
Quarter: 2015Q4

REPORT INFORMATION
  Report Type: Spontaneous
  Country: US (occurrence: None)
  Receive Date: 20151103
  Receipt Date: 20151103
  Transmission Date: 20160304
  Serious: Yes (Other)
  Sender: FDA-Public Use
  Company Number: None

PATIENT
  Age: 70 Year
  Sex: Male
  Weight: 84.37 kg

DRUGS (9)
  1. PRAZOSIN [Concomitant]
     Active Substance: PRAZOSIN
  2. ZOLPIDEM (MYLAN BRAND) 5 MG APHENIA PHARMA [Suspect]
     Active Substance: ZOLPIDEM\ZOLPIDEM TARTRATE
     Indication: INSOMNIA
     Dosage: 1 PILL
     Route: 048
     Dates: start: 20151027, end: 20151030
  3. LAMOTRIGINE. [Concomitant]
     Active Substance: LAMOTRIGINE
  4. ADDERRALL SA [Concomitant]
  5. CYANOCOBALMIN [Concomitant]
     Active Substance: CYANOCOBALAMIN
  6. FOLATE [Concomitant]
     Active Substance: FOLATE SODIUM
  7. VITAMIN D3? [Concomitant]
  8. DEPAKOTE ER [Concomitant]
     Active Substance: DIVALPROEX SODIUM
  9. PYRIDOXINE [Concomitant]
     Active Substance: PYRIDOXINE

REACTIONS (2)
  - Insomnia [None]
  - Product substitution issue [None]

NARRATIVE: CASE EVENT DATE: 20151028
